FAERS Safety Report 24631098 (Version 1)
Quarter: 2024Q4

REPORT INFORMATION
  Report Type: Spontaneous
  Country: JP (occurrence: JP)
  Receive Date: 20241118
  Receipt Date: 20241118
  Transmission Date: 20250114
  Serious: Yes (Hospitalization, Other)
  Sender: BRISTOL-MYERS SQUIBB COMPANY
  Company Number: JP-BRISTOL-MYERS SQUIBB COMPANY-2024-176401

PATIENT
  Age: 47 Year
  Sex: Male

DRUGS (3)
  1. ATAZANAVIR SULFATE [Suspect]
     Active Substance: ATAZANAVIR SULFATE
     Indication: Acquired immunodeficiency syndrome
  2. RITONAVIR [Concomitant]
     Active Substance: RITONAVIR
     Indication: Acquired immunodeficiency syndrome
  3. ABACAVIR AND LAMIVUDINE [Concomitant]
     Active Substance: ABACAVIR SULFATE\LAMIVUDINE
     Indication: Acquired immunodeficiency syndrome
     Dosage: 600/300 MG

REACTIONS (3)
  - Acute kidney injury [Recovered/Resolved]
  - Ureteric obstruction [Recovered/Resolved]
  - Ureterolithiasis [Recovered/Resolved]
